FAERS Safety Report 22658751 (Version 1)
Quarter: 2023Q2

REPORT INFORMATION
  Report Type: Spontaneous
  Country: PL (occurrence: PL)
  Receive Date: 20230630
  Receipt Date: 20230630
  Transmission Date: 20230721
  Serious: Yes (Death, Hospitalization, Other)
  Sender: FDA-Public Use
  Company Number: PL-Accord-363523

PATIENT
  Age: 64 Year
  Sex: Female

DRUGS (16)
  1. DEXAMETHASONE [Suspect]
     Active Substance: DEXAMETHASONE
     Indication: Product used for unknown indication
     Route: 065
  2. METOPROLOL [Suspect]
     Active Substance: METOPROLOL
     Indication: Osteoarthritis
     Dosage: CONTROLLED RELEASE 1X50 MG
     Route: 065
  3. ACENOCOUMAROL [Suspect]
     Active Substance: ACENOCOUMAROL
     Indication: Product used for unknown indication
     Route: 065
  4. ACETAMINOPHEN\DIPHENHYDRAMINE\PHENYLEPHRINE [Suspect]
     Active Substance: ACETAMINOPHEN\DIPHENHYDRAMINE\PHENYLEPHRINE
     Indication: Arthralgia
     Dosage: AT NIGHT
     Route: 065
  5. WARFARIN [Suspect]
     Active Substance: WARFARIN
     Indication: Product used for unknown indication
     Route: 065
  6. WARFARIN [Suspect]
     Active Substance: WARFARIN
     Indication: Osteoarthritis
     Dosage: VARIABLE DOSES ADJUSTED TO THE INR VALUE
     Route: 065
  7. TICLOPIDINE [Suspect]
     Active Substance: TICLOPIDINE
     Indication: Product used for unknown indication
     Route: 065
  8. ACETAMINOPHEN [Suspect]
     Active Substance: ACETAMINOPHEN
     Indication: Arthralgia
     Dosage: 1,000 MG 2 X/24 H
     Route: 065
  9. OMEPRAZOLE [Suspect]
     Active Substance: OMEPRAZOLE
     Indication: Abdominal pain upper
     Dosage: 40 MG/24 H
     Route: 065
  10. GLUCOSAMINE [Suspect]
     Active Substance: GLUCOSAMINE
     Indication: Product used for unknown indication
     Route: 065
  11. CARBAMAZEPINE [Suspect]
     Active Substance: CARBAMAZEPINE
     Indication: Product used for unknown indication
     Route: 065
  12. CIPROFLOXACIN [Suspect]
     Active Substance: CIPROFLOXACIN
     Indication: Product used for unknown indication
     Route: 065
  13. ESOMEPRAZOLE [Suspect]
     Active Substance: ESOMEPRAZOLE
     Indication: Product used for unknown indication
     Route: 065
  14. ETHINYL ESTRADIOL [Suspect]
     Active Substance: ETHINYL ESTRADIOL
     Indication: Product used for unknown indication
     Dosage: PRESENT IN ORAL CONTRACEPTIVES AND IN HORMONE REPLACEMENT THERAPY
     Route: 065
  15. FLUVOXAMINE [Suspect]
     Active Substance: FLUVOXAMINE
     Indication: Product used for unknown indication
     Route: 065
  16. PROPAFENONE [Suspect]
     Active Substance: PROPAFENONE
     Indication: Osteoarthritis
     Dosage: 2X150 MG
     Route: 065

REACTIONS (5)
  - Subarachnoid haemorrhage [Fatal]
  - Drug interaction [Unknown]
  - Drug level increased [Unknown]
  - Abdominal pain [Unknown]
  - Product prescribing issue [Unknown]
